FAERS Safety Report 4367851-3 (Version None)
Quarter: 2004Q2

REPORT INFORMATION
  Report Type: 
  Country: None (occurrence: None)
  Receive Date: 20040601
  Receipt Date: 20040601
  Transmission Date: 20050107
  Serious: Yes (Other)
  Sender: FDA-Public Use
  Company Number: None

PATIENT
  Sex: Female
  Weight: 48.9885 kg

DRUGS (2)
  1. DEPO-PROVERA [Suspect]
     Indication: CONTRACEPTION
     Dosage: 150MG EVER 12W INTRAMUSCULAR
     Route: 030
     Dates: start: 20030722, end: 20031022
  2. DEPO-PROVERA [Suspect]
     Indication: CONTRACEPTION
     Dosage: 150MG EVER 12W INTRAMUSCULAR
     Route: 030
     Dates: start: 20040110, end: 20040414

REACTIONS (1)
  - PREGNANCY WITH INJECTABLE CONTRACEPTIVE [None]
